FAERS Safety Report 7605575-7 (Version None)
Quarter: 2011Q3

REPORT INFORMATION
  Report Type: 
  Country: None (occurrence: None)
  Receive Date: 20110713
  Receipt Date: 20110707
  Transmission Date: 20111222
  Serious: Yes (Hospitalization)
  Sender: FDA-Public Use
  Company Number: JP-B.I. PHARMACEUTICALS,INC./RIDGEFIELD-2011-BP-14822NB

PATIENT
  Sex: Female
  Weight: 58 kg

DRUGS (7)
  1. PRADAXA [Suspect]
     Indication: ATRIAL FIBRILLATION
     Dosage: 300 MG
     Route: 048
     Dates: start: 20110513, end: 20110517
  2. DIOVAN [Concomitant]
     Route: 065
     Dates: start: 20110512
  3. LANSOPRAZOLE [Concomitant]
     Dosage: 30 MG
     Route: 065
     Dates: start: 20110512
  4. POTASSIUM IODIDE [Concomitant]
     Dosage: 50 MG
     Route: 065
     Dates: start: 20110512
  5. LASIX [Concomitant]
     Route: 065
     Dates: start: 20110512
  6. FUROSEMIDE [Concomitant]
     Route: 065
     Dates: start: 20110512
  7. NEO-MERCAZOLE TAB [Concomitant]
     Route: 065
     Dates: start: 20110512

REACTIONS (1)
  - SPLENIC INFARCTION [None]
